FAERS Safety Report 25059814 (Version 5)
Quarter: 2025Q4

REPORT INFORMATION
  Report Type: Spontaneous
  Country: US (occurrence: US)
  Receive Date: 20250310
  Receipt Date: 20251107
  Transmission Date: 20260118
  Serious: Yes (Hospitalization)
  Sender: THERATECHNOLOGIES
  Company Number: US-THERATECHNOLOGIES INC.-2025-THE-IBA-000059

PATIENT

DRUGS (3)
  1. TROGARZO [Suspect]
     Active Substance: IBALIZUMAB-UIYK
     Indication: HIV infection
     Dosage: 800 MG, EVERY 14 DAYS
     Route: 042
     Dates: start: 202502
  2. TROGARZO [Suspect]
     Active Substance: IBALIZUMAB-UIYK
     Dosage: 800 MG, EVERY 14 DAYS
     Route: 042
  3. TROGARZO [Suspect]
     Active Substance: IBALIZUMAB-UIYK
     Dosage: 2000 MG  ONE DOSE LOADING DOSE
     Route: 042

REACTIONS (3)
  - Hospitalisation [Recovering/Resolving]
  - Hospitalisation [Unknown]
  - Product dose omission in error [Unknown]

NARRATIVE: CASE EVENT DATE: 20251003
